FAERS Safety Report 4978566-2 (Version None)
Quarter: 2006Q2

REPORT INFORMATION
  Report Type: 
  Country: None (occurrence: None)
  Receive Date: 20060414
  Receipt Date: 20060407
  Transmission Date: 20061013
  Serious: Yes (Death)
  Sender: FDA-Public Use
  Company Number: 200611424GDS

PATIENT
  Age: 69 Year
  Sex: Male

DRUGS (5)
  1. ADIRO 100 MG (ACETYLSALICYLIC ACID) [Suspect]
     Indication: CARDIAC DISORDER
     Dosage: 100 MG, TOTAL DAILY, ORAL
     Route: 048
     Dates: start: 20021001, end: 20031222
  2. RENITEC 5 MG (ENALAPRIL MALEATE) [Suspect]
     Indication: CARDIAC DISORDER
     Dosage: 5 MG, TOTAL DAILY, ORAL
     Route: 048
     Dates: start: 20021001, end: 20031022
  3. ATENOLOL [Suspect]
     Indication: CARDIAC DISORDER
     Dosage: 50 MG, TOTAL DAILY, ORAL
     Route: 048
     Dates: start: 20021001, end: 20040112
  4. ZOCOR [Suspect]
     Indication: HYPERLIPIDAEMIA
     Dosage: 10 MG, TOTAL DAILY, ORAL
     Route: 048
     Dates: start: 20030123, end: 20030721
  5. ZINNAT 125 MG (CEFUROXIME AXETIL) [Suspect]
     Indication: ENCEPHALITIS VIRAL
     Dosage: QD, ORAL
     Route: 048
     Dates: start: 20030101, end: 20031125

REACTIONS (2)
  - HEPATIC ENZYME INCREASED [None]
  - HEPATITIS [None]
